FAERS Safety Report 11768426 (Version 1)
Quarter: 2015Q4

REPORT INFORMATION
  Report Type: Report from Study
  Country: US (occurrence: US)
  Receive Date: 20151123
  Receipt Date: 20151123
  Transmission Date: 20160304
  Serious: Yes (Death)
  Sender: FDA-Public Use
  Company Number: US-MYLANLABS-2015M1039899

PATIENT
  Age: 87 Year
  Sex: Male

DRUGS (3)
  1. CLOZAPINE TABLETS, USP [Suspect]
     Active Substance: CLOZAPINE
     Indication: ABNORMAL BEHAVIOUR
     Dosage: 25 MG, QD
     Route: 048
     Dates: start: 201408
  2. CLOZAPINE TABLETS, USP [Suspect]
     Active Substance: CLOZAPINE
     Indication: OFF LABEL USE
  3. CLONAZEPAM. [Concomitant]
     Active Substance: CLONAZEPAM
     Dosage: UNK

REACTIONS (3)
  - Drug ineffective for unapproved indication [Not Recovered/Not Resolved]
  - Death [Fatal]
  - Mobility decreased [Not Recovered/Not Resolved]

NARRATIVE: CASE EVENT DATE: 20150222
